FAERS Safety Report 7789331-5 (Version None)
Quarter: 2011Q3

REPORT INFORMATION
  Report Type: 
  Country: None (occurrence: None)
  Receive Date: 20110930
  Receipt Date: 20110928
  Transmission Date: 20111222
  Serious: Yes (Hospitalization)
  Sender: FDA-Public Use
  Company Number: US-GLAXOSMITHKLINE-A0946458A

PATIENT
  Sex: Male
  Weight: 136.4 kg

DRUGS (12)
  1. ELAVIL [Concomitant]
  2. CELEXA [Concomitant]
  3. ZOCOR [Concomitant]
  4. EFFEXOR [Concomitant]
  5. GLIPIZIDE [Concomitant]
  6. METFORMIN HCL [Concomitant]
  7. ZANTAC [Concomitant]
  8. LOPID [Concomitant]
  9. LISINOPRIL [Concomitant]
  10. RISPERDAL [Concomitant]
  11. AVANDIA [Suspect]
     Indication: DIABETES MELLITUS
     Dosage: 2MG IN THE MORNING
     Route: 048
  12. METOPROLOL [Concomitant]

REACTIONS (7)
  - ATRIAL FIBRILLATION [None]
  - SICK SINUS SYNDROME [None]
  - RENAL FAILURE [None]
  - CORONARY ARTERY DISEASE [None]
  - CARDIOMYOPATHY [None]
  - CARDIAC FAILURE CONGESTIVE [None]
  - TRAUMATIC LUNG INJURY [None]
